FAERS Safety Report 5011226-0 (Version None)
Quarter: 2006Q2

REPORT INFORMATION
  Report Type: 
  Country: None (occurrence: None)
  Receive Date: 20060524
  Receipt Date: 20060427
  Transmission Date: 20061013
  Serious: Yes (Hospitalization)
  Sender: FDA-Public Use
  Company Number: WAES 0605NLD00012

PATIENT
  Sex: 0

DRUGS (1)
  1. SIMVASTATIN [Suspect]
     Indication: NEOPLASM
     Dosage: 12.5 MG/KG
     Route: 048

REACTIONS (6)
  - CONDITION AGGRAVATED [None]
  - DIARRHOEA [None]
  - MALIGNANT NEOPLASM PROGRESSION [None]
  - MULTIPLE MYELOMA [None]
  - RENAL TUBULAR NECROSIS [None]
  - SEPTIC SHOCK [None]
